FAERS Safety Report 17444660 (Version 1)
Quarter: 2020Q1

REPORT INFORMATION
  Report Type: Spontaneous
  Country: US (occurrence: US)
  Receive Date: 20200221
  Receipt Date: 20200221
  Transmission Date: 20200409
  Serious: Yes (Death, Hospitalization, Other)
  Sender: FDA-Public Use
  Company Number: US-TEVA-2020-US-1187789

PATIENT
  Age: 68 Year
  Sex: Male
  Weight: 92.6 kg

DRUGS (4)
  1. IRINOTECAN [Suspect]
     Active Substance: IRINOTECAN
     Indication: PANCREATIC CARCINOMA METASTATIC
     Dosage: 340 MG, 1/WEEK
     Route: 042
     Dates: start: 20170110, end: 20170110
  2. 5-FLUOROURACIL [Suspect]
     Active Substance: FLUOROURACIL
     Indication: PANCREATIC CARCINOMA METASTATIC
     Dosage: 4944 MG, 1/WEEK
     Route: 042
     Dates: start: 20170110, end: 20170110
  3. OXALIPLATIN. [Suspect]
     Active Substance: OXALIPLATIN
     Indication: PANCREATIC CARCINOMA METASTATIC
     Dosage: 175.1 MG, 1/WEEK
     Route: 042
     Dates: start: 20170110, end: 20170110
  4. BBI608 [Suspect]
     Active Substance: NAPABUCASIN
     Indication: PANCREATIC CARCINOMA METASTATIC
     Route: 048
     Dates: start: 20170106, end: 20170115

REACTIONS (1)
  - Pneumonia [Not Recovered/Not Resolved]

NARRATIVE: CASE EVENT DATE: 20170115
